FAERS Safety Report 10022334 (Version 14)
Quarter: 2016Q1

REPORT INFORMATION
  Report Type: Report from Study
  Country: FR (occurrence: FR)
  Receive Date: 20140319
  Receipt Date: 20160127
  Transmission Date: 20160525
  Serious: Yes (Hospitalization)
  Sender: FDA-Public Use
  Company Number: FR-ROCHE-1364184

PATIENT
  Age: 70 Year
  Sex: Female
  Weight: 65 kg

DRUGS (15)
  1. PARACETAMOL [Concomitant]
     Active Substance: ACETAMINOPHEN
     Indication: EYE PAIN
     Route: 065
     Dates: start: 20111119
  2. SEDORRHOIDE [Concomitant]
     Indication: HAEMORRHOIDS
     Dosage: 2 APPLICATIONS/ DAY
     Route: 065
     Dates: start: 20130816
  3. INEXIUM [Concomitant]
     Active Substance: ESOMEPRAZOLE
     Indication: PROPHYLAXIS AGAINST GASTROINTESTINAL ULCER
     Route: 048
     Dates: start: 20120427, end: 20120601
  4. SMECTA [Concomitant]
     Active Substance: MONTMORILLONITE
     Indication: DIARRHOEA
     Route: 065
     Dates: start: 20120508, end: 20120701
  5. LAROXYL [Concomitant]
     Active Substance: AMITRIPTYLINE
     Indication: EYE PAIN
     Route: 065
     Dates: start: 20121003, end: 20121101
  6. REFRESH CELLUVISC [Concomitant]
     Active Substance: CARBOXYMETHYLCELLULOSE SODIUM
     Indication: DRY EYE
     Route: 047
     Dates: start: 201207
  7. EDUCTYL [Concomitant]
     Active Substance: POTASSIUM BITARTRATE\SODIUM BICARBONATE
     Indication: CONSTIPATION
     Route: 065
     Dates: start: 20111104, end: 20111118
  8. SMECTA [Concomitant]
     Active Substance: MONTMORILLONITE
     Route: 065
     Dates: start: 201206
  9. IXPRIM [Concomitant]
     Active Substance: ACETAMINOPHEN\TRAMADOL HYDROCHLORIDE
     Indication: EYE PAIN
     Route: 065
     Dates: start: 20120403, end: 20120701
  10. TOPALGIC (FRANCE) [Concomitant]
     Active Substance: TRAMADOL
     Indication: AMYOTROPHY
     Route: 065
     Dates: start: 20121003, end: 20121101
  11. HEXAQUINE [Concomitant]
     Active Substance: NIAOULI OIL\QUININE BENZOATE\THIAMINE HYDROCHLORIDE
     Indication: MUSCLE SPASMS
     Route: 065
     Dates: start: 20121026
  12. PICLOXYDINE [Concomitant]
     Active Substance: PICLOXYDINE
     Indication: LACRIMATION INCREASED
     Route: 065
     Dates: start: 20111129, end: 20120601
  13. FORLAX [Concomitant]
     Active Substance: POLYETHYLENE GLYCOL 4000
     Indication: CONSTIPATION
     Route: 065
     Dates: start: 20120712, end: 20120730
  14. MAGNE B6 [Concomitant]
     Active Substance: MAGNESIUM\PYRIDOXINE
     Indication: MUSCLE SPASMS
     Route: 048
     Dates: start: 20120903, end: 20121226
  15. VISMODEGIB [Suspect]
     Active Substance: VISMODEGIB
     Indication: BASAL CELL CARCINOMA
     Dosage: DATE OF LAST DOSE OF VISMODEGIB PRIOR TO EVENTS WAS: 04/NOV/2013
     Route: 048
     Dates: start: 20110907, end: 20131104

REACTIONS (3)
  - Pulmonary embolism [Recovered/Resolved]
  - Ascites [Recovered/Resolved]
  - Ascites [Recovered/Resolved]

NARRATIVE: CASE EVENT DATE: 20140107
